FAERS Safety Report 4776968-0 (Version None)
Quarter: 2005Q3

REPORT INFORMATION
  Report Type: 
  Country: None (occurrence: None)
  Receive Date: 20050915
  Receipt Date: 20050831
  Transmission Date: 20060218
  Serious: Yes (Other)
  Sender: FDA-Public Use
  Company Number: 217498

PATIENT
  Age: 75 Year
  Sex: Male

DRUGS (3)
  1. AVASTIN [Suspect]
     Indication: COLORECTAL CANCER METASTATIC
     Dosage: 330 MG, Q2W, INTRAVENOUS
     Route: 042
     Dates: start: 20050819
  2. OXALIPLATIN (OXALIPLATIN) [Suspect]
     Indication: COLORECTAL CANCER METASTATIC
     Dosage: 150 MG, Q2W, INTRAVENOUS
     Route: 042
     Dates: start: 20050819
  3. FLUOROURACIL [Suspect]
     Indication: COLORECTAL CANCER METASTATIC
     Dosage: 3560 MG, Q2W, INTRAVENOUS
     Route: 042
     Dates: start: 20050819

REACTIONS (5)
  - BLOOD PRESSURE SYSTOLIC INCREASED [None]
  - BODY TEMPERATURE DECREASED [None]
  - FEELING ABNORMAL [None]
  - NEUROTOXICITY [None]
  - VERTIGO [None]
